FAERS Safety Report 25210506 (Version 1)
Quarter: 2025Q2

REPORT INFORMATION
  Report Type: Spontaneous
  Country: FR (occurrence: FR)
  Receive Date: 20250417
  Receipt Date: 20250417
  Transmission Date: 20250717
  Serious: Yes (Hospitalization)
  Sender: MYLAN
  Company Number: None

PATIENT
  Age: 49 Year
  Sex: Female

DRUGS (28)
  1. TRAMADOL [Suspect]
     Active Substance: TRAMADOL
     Indication: Pain
     Dosage: 400 MILLIGRAM, QD
     Dates: end: 20250214
  2. TRAMADOL [Suspect]
     Active Substance: TRAMADOL
     Dosage: 400 MILLIGRAM, QD
     Dates: end: 20250214
  3. TRAMADOL [Suspect]
     Active Substance: TRAMADOL
     Dosage: 400 MILLIGRAM, QD
     Route: 048
     Dates: end: 20250214
  4. TRAMADOL [Suspect]
     Active Substance: TRAMADOL
     Dosage: 400 MILLIGRAM, QD
     Route: 048
     Dates: end: 20250214
  5. TRAMADOL [Suspect]
     Active Substance: TRAMADOL
     Dosage: 50 MILLIGRAM, QD (+ 2X50MG/DAY IF NEEDED)
  6. TRAMADOL [Suspect]
     Active Substance: TRAMADOL
     Dosage: 50 MILLIGRAM, QD (+ 2X50MG/DAY IF NEEDED)
  7. TRAMADOL [Suspect]
     Active Substance: TRAMADOL
     Dosage: 50 MILLIGRAM, QD (+ 2X50MG/DAY IF NEEDED)
     Route: 048
  8. TRAMADOL [Suspect]
     Active Substance: TRAMADOL
     Dosage: 50 MILLIGRAM, QD (+ 2X50MG/DAY IF NEEDED)
     Route: 048
  9. BACLOFEN [Suspect]
     Active Substance: BACLOFEN
     Indication: Pain
     Dosage: 90 MILLIGRAM, QD
     Route: 048
     Dates: end: 20250214
  10. BACLOFEN [Suspect]
     Active Substance: BACLOFEN
     Dosage: 90 MILLIGRAM, QD
     Dates: end: 20250214
  11. BACLOFEN [Suspect]
     Active Substance: BACLOFEN
     Dosage: 90 MILLIGRAM, QD
     Dates: end: 20250214
  12. BACLOFEN [Suspect]
     Active Substance: BACLOFEN
     Dosage: 90 MILLIGRAM, QD
     Route: 048
     Dates: end: 20250214
  13. BACLOFEN [Suspect]
     Active Substance: BACLOFEN
     Dosage: 60 MILLIGRAM, QD
     Route: 048
  14. BACLOFEN [Suspect]
     Active Substance: BACLOFEN
     Dosage: 60 MILLIGRAM, QD
  15. BACLOFEN [Suspect]
     Active Substance: BACLOFEN
     Dosage: 60 MILLIGRAM, QD
  16. BACLOFEN [Suspect]
     Active Substance: BACLOFEN
     Dosage: 60 MILLIGRAM, QD
     Route: 048
  17. PREGABALIN [Suspect]
     Active Substance: PREGABALIN
     Indication: Pain
     Dosage: 600 MILLIGRAM, QD
     Dates: end: 20250214
  18. PREGABALIN [Suspect]
     Active Substance: PREGABALIN
     Dosage: 600 MILLIGRAM, QD
     Dates: end: 20250214
  19. PREGABALIN [Suspect]
     Active Substance: PREGABALIN
     Dosage: 600 MILLIGRAM, QD
     Route: 048
     Dates: end: 20250214
  20. PREGABALIN [Suspect]
     Active Substance: PREGABALIN
     Dosage: 600 MILLIGRAM, QD
     Route: 048
     Dates: end: 20250214
  21. PREGABALIN [Suspect]
     Active Substance: PREGABALIN
     Dosage: 600 MILLIGRAM, QD
  22. PREGABALIN [Suspect]
     Active Substance: PREGABALIN
     Dosage: 600 MILLIGRAM, QD
  23. PREGABALIN [Suspect]
     Active Substance: PREGABALIN
     Dosage: 600 MILLIGRAM, QD
     Route: 048
  24. PREGABALIN [Suspect]
     Active Substance: PREGABALIN
     Dosage: 600 MILLIGRAM, QD
     Route: 048
  25. DULOXETINE [Suspect]
     Active Substance: DULOXETINE
     Indication: Product used for unknown indication
     Dosage: 30 MILLIGRAM, QD
     Dates: end: 20250214
  26. DULOXETINE [Suspect]
     Active Substance: DULOXETINE
     Dosage: 30 MILLIGRAM, QD
     Route: 048
     Dates: end: 20250214
  27. DULOXETINE [Suspect]
     Active Substance: DULOXETINE
     Dosage: 30 MILLIGRAM, QD
     Route: 048
     Dates: end: 20250214
  28. DULOXETINE [Suspect]
     Active Substance: DULOXETINE
     Dosage: 30 MILLIGRAM, QD
     Dates: end: 20250214

REACTIONS (2)
  - Confusional state [Recovered/Resolved]
  - Altered state of consciousness [Recovered/Resolved]

NARRATIVE: CASE EVENT DATE: 20250210
